FAERS Safety Report 17325304 (Version 1)
Quarter: 2020Q1

REPORT INFORMATION
  Report Type: Spontaneous
  Country: AU (occurrence: AU)
  Receive Date: 20200127
  Receipt Date: 20200127
  Transmission Date: 20200409
  Serious: Yes (Other)
  Sender: FDA-Public Use
  Company Number: AU-MYLANLABS-2020M1007353

PATIENT
  Sex: Female

DRUGS (1)
  1. DERALIN [Suspect]
     Active Substance: PROPRANOLOL HYDROCHLORIDE
     Indication: PRODUCT USED FOR UNKNOWN INDICATION
     Dosage: 1 TABLET DAILY FOR 2 WEEKS

REACTIONS (6)
  - Feeling hot [Unknown]
  - Chest pain [Unknown]
  - Lethargy [Unknown]
  - Fatigue [Unknown]
  - Angina pectoris [Unknown]
  - Musculoskeletal pain [Unknown]
